FAERS Safety Report 12133991 (Version 1)
Quarter: 2016Q1

REPORT INFORMATION
  Report Type: Spontaneous
  Country: US (occurrence: US)
  Receive Date: 20160301
  Receipt Date: 20160301
  Transmission Date: 20160526
  Serious: No
  Sender: FDA-Public Use
  Company Number: US-INSYS THERAPEUTICS, INC-INS201506-000283

PATIENT
  Age: 25 Year
  Sex: Male

DRUGS (1)
  1. SUBSYS [Suspect]
     Active Substance: FENTANYL
     Indication: COMPLEX REGIONAL PAIN SYNDROME

REACTIONS (1)
  - Drug ineffective for unapproved indication [Unknown]

NARRATIVE: CASE EVENT DATE: 20150626
